FAERS Safety Report 8817645 (Version 1)
Quarter: 2012Q4

REPORT INFORMATION
  Report Type: 
  Country: US (occurrence: US)
  Receive Date: 20121001
  Receipt Date: 20121001
  Transmission Date: 20130627
  Serious: No
  Sender: FDA-Public Use
  Company Number: US-BAYER-2012-092172

PATIENT
  Sex: Male

DRUGS (4)
  1. STAXYN (FDT/ODT) [Suspect]
     Indication: ERECTILE DYSFUNCTION
     Dosage: 10 mg, UNK
     Route: 048
  2. ATENOLOL [Concomitant]
     Indication: HYPERTENSION
     Route: 048
  3. DRUG USED IN DIABETES [Concomitant]
     Indication: DIABETES MELLITUS
  4. ALEVE [Concomitant]
     Indication: PAIN
     Route: 048

REACTIONS (1)
  - Erectile dysfunction [None]
